FAERS Safety Report 5187676-9 (Version None)
Quarter: 2006Q4

REPORT INFORMATION
  Report Type: 
  Country: None (occurrence: None)
  Receive Date: 20061214
  Receipt Date: 20061201
  Transmission Date: 20070319
  Serious: Yes (Death, Life-Threatening, Hospitalization)
  Sender: FDA-Public Use
  Company Number: 233430

PATIENT
  Age: 58 Year
  Sex: Female

DRUGS (2)
  1. HERCEPTIN [Suspect]
     Indication: DRUG USE FOR UNKNOWN INDICATION
     Dosage: INTRAVENOUS
     Route: 042
     Dates: start: 20060601
  2. CAPECITABINE (CAPECITABINE) [Concomitant]

REACTIONS (3)
  - CARDIAC DEATH [None]
  - CARDIOTOXICITY [None]
  - DRUG TOXICITY [None]
